FAERS Safety Report 7718571-6 (Version None)
Quarter: 2011Q3

REPORT INFORMATION
  Report Type: 
  Country: None (occurrence: None)
  Receive Date: 20110830
  Receipt Date: 20110816
  Transmission Date: 20111222
  Serious: Yes (Hospitalization, Other)
  Sender: FDA-Public Use
  Company Number: US-ELI_LILLY_AND_COMPANY-US201105008363

PATIENT
  Sex: Female

DRUGS (6)
  1. PLAVIX [Concomitant]
  2. FORTEO [Suspect]
     Dosage: 20 UG, QD
  3. FORTEO [Suspect]
     Dosage: 20 UG, QD
     Dates: end: 20110725
  4. KEPPRA [Concomitant]
     Dosage: 500 MG, BID
  5. ASPIRIN [Concomitant]
  6. FORTEO [Suspect]
     Indication: OSTEOPOROSIS
     Dosage: 20 UG, QD
     Dates: start: 20090816

REACTIONS (3)
  - DRUG DOSE OMISSION [None]
  - INTRACRANIAL ANEURYSM [None]
  - LOSS OF CONSCIOUSNESS [None]
